FAERS Safety Report 11260857 (Version 3)
Quarter: 2015Q4

REPORT INFORMATION
  Report Type: Report from Study
  Country: JP (occurrence: JP)
  Receive Date: 20150710
  Receipt Date: 20151113
  Transmission Date: 20160304
  Serious: Yes (Death, Life-Threatening)
  Sender: FDA-Public Use
  Company Number: JP-SA-2015SA057374

PATIENT
  Age: 48 Year
  Sex: Female
  Weight: 54 kg

DRUGS (18)
  1. PROGRAF [Concomitant]
     Active Substance: TACROLIMUS\TACROLIMUS ANHYDROUS
     Indication: PROPHYLAXIS AGAINST GRAFT VERSUS HOST DISEASE
     Dates: start: 20130610, end: 20130626
  2. ZOVIRAX [Suspect]
     Active Substance: ACYCLOVIR
     Indication: INFECTION PROPHYLAXIS
     Route: 048
     Dates: start: 20130327, end: 20130721
  3. FINIBAX [Suspect]
     Active Substance: DORIPENEM MONOHYDRATE
     Indication: SEPSIS
     Route: 065
     Dates: start: 20130403, end: 20130711
  4. BAKTAR [Concomitant]
     Active Substance: SULFAMETHOXAZOLE\TRIMETHOPRIM
     Indication: PROPHYLAXIS
     Route: 048
     Dates: start: 20130327, end: 20130425
  5. G-CSF [Concomitant]
     Active Substance: GRANULOCYTE COLONY-STIMULATING FACTOR NOS
     Indication: APLASTIC ANAEMIA
     Dates: start: 20130328, end: 20130603
  6. NEORAL [Concomitant]
     Active Substance: CYCLOSPORINE
     Indication: APLASTIC ANAEMIA
     Dates: start: 20130408, end: 20130530
  7. FLUDARA [Concomitant]
     Active Substance: FLUDARABINE PHOSPHATE
     Indication: APLASTIC ANAEMIA
     Route: 042
     Dates: start: 20130605, end: 20130609
  8. ALKERAN [Concomitant]
     Active Substance: MELPHALAN
     Indication: APLASTIC ANAEMIA
     Route: 042
     Dates: start: 20130608, end: 20130609
  9. PREDONINE [Concomitant]
     Active Substance: PREDNISOLONE\PREDNISOLONE ACETATE\PREDNISOLONE SODIUM SUCCINATE
     Indication: APLASTIC ANAEMIA
     Route: 048
     Dates: start: 20130408, end: 20130506
  10. KENKETSU VENILON [Concomitant]
     Indication: INFECTION PROPHYLAXIS
     Dates: start: 20130509, end: 20130509
  11. THYMOGLOBULINE [Suspect]
     Active Substance: LAPINE T-LYMPHOCYTE IMMUNE GLOBULIN
     Indication: APLASTIC ANAEMIA
     Route: 041
     Dates: start: 20130408, end: 20130412
  12. AMBISOME [Suspect]
     Active Substance: AMPHOTERICIN B
     Indication: ASPERGILLOMA
     Route: 065
     Dates: start: 20130423, end: 20130721
  13. GRAN [Concomitant]
     Active Substance: FILGRASTIM
     Indication: INFECTION PROPHYLAXIS
     Dates: start: 20130328, end: 20130603
  14. DIFLUCAN [Concomitant]
     Active Substance: FLUCONAZOLE
     Indication: PROPHYLAXIS
     Route: 048
     Dates: start: 20130327, end: 20130425
  15. POLYMYXIN B SULFATE. [Concomitant]
     Active Substance: POLYMYXIN B SULFATE
     Indication: INFECTION PROPHYLAXIS
     Route: 048
     Dates: start: 20130605, end: 20130721
  16. LASIX [Concomitant]
     Active Substance: FUROSEMIDE
     Indication: PROPHYLAXIS
     Route: 042
     Dates: start: 20130508, end: 20130509
  17. FINIBAX [Suspect]
     Active Substance: DORIPENEM MONOHYDRATE
     Indication: INFECTION PROPHYLAXIS
     Route: 065
     Dates: start: 20130403, end: 20130711
  18. NEXIUM [Concomitant]
     Active Substance: ESOMEPRAZOLE MAGNESIUM
     Indication: PROPHYLAXIS AGAINST GASTROINTESTINAL ULCER
     Route: 048
     Dates: start: 20130327, end: 20130607

REACTIONS (5)
  - Pyrexia [Recovered/Resolved]
  - Sepsis [Recovered/Resolved]
  - Pancytopenia [Recovering/Resolving]
  - Aspergilloma [Fatal]
  - Liver disorder [Recovered/Resolved]

NARRATIVE: CASE EVENT DATE: 20130409
